FAERS Safety Report 9240000 (Version 3)
Quarter: 2013Q4

REPORT INFORMATION
  Report Type: Spontaneous
  Country: US (occurrence: US)
  Receive Date: 20130418
  Receipt Date: 20131204
  Transmission Date: 20140711
  Serious: Yes (Death, Hospitalization, Disabling, Other)
  Sender: FDA-Public Use
  Company Number: US-009507513-1304USA008235

PATIENT
  Sex: Female
  Weight: 58.96 kg

DRUGS (12)
  1. JANUVIA [Suspect]
     Indication: TYPE 2 DIABETES MELLITUS
     Dosage: 100 MG, QD
     Route: 048
     Dates: start: 20110213, end: 20111001
  2. JANUVIA [Suspect]
     Dosage: 100 MG, QD
     Route: 048
     Dates: start: 20120327, end: 20120426
  3. JANUMET [Suspect]
     Indication: DIABETES MELLITUS
     Dosage: 50-100
     Route: 048
     Dates: start: 201203, end: 201208
  4. LEVOTHYROXINE SODIUM [Concomitant]
     Dosage: 50 MICROGRAM, UNK
     Dates: start: 20091129, end: 201208
  5. LISINOPRIL [Concomitant]
     Dosage: 81 MG, UNK
     Dates: start: 20101223, end: 201208
  6. LOPRESSOR [Concomitant]
     Dosage: 100 MG, UNK
     Dates: start: 20101120, end: 201208
  7. GLIPIZIDE [Concomitant]
     Indication: DIABETES MELLITUS
     Dosage: 5 MG, UNK
     Dates: start: 20120118, end: 201208
  8. CYMBALTA [Concomitant]
     Indication: DEPRESSION
     Dosage: UNK
     Dates: start: 20101123, end: 201208
  9. SIMVASTATIN [Concomitant]
     Dosage: UNK
     Dates: start: 20101129, end: 201208
  10. LEVEMIR [Concomitant]
     Dosage: UNK
     Dates: start: 201001, end: 201208
  11. SPIRIVA [Concomitant]
     Dosage: UNK
     Dates: start: 20110806, end: 201208
  12. NEURONTIN [Concomitant]
     Dosage: UNK
     Dates: start: 20111117, end: 201208

REACTIONS (12)
  - Pancreatic carcinoma [Fatal]
  - Metastases to liver [Unknown]
  - Ascites [Unknown]
  - Ileus [Unknown]
  - Small intestinal obstruction [Unknown]
  - Ileus [Unknown]
  - Anaemia [Unknown]
  - Dehydration [Unknown]
  - Abnormal loss of weight [Unknown]
  - Peritoneal disorder [Unknown]
  - Diabetic neuropathy [Unknown]
  - Abdominal pain [Unknown]
